FAERS Safety Report 6083506-1 (Version None)
Quarter: 2009Q1

REPORT INFORMATION
  Report Type: 
  Country: None (occurrence: None)
  Receive Date: 20090217
  Receipt Date: 20090122
  Transmission Date: 20090719
  Serious: Yes (Hospitalization)
  Sender: FDA-Public Use
  Company Number: 230003K05USA

PATIENT
  Age: 53 Year
  Sex: Female

DRUGS (6)
  1. REBIF [Suspect]
     Indication: MULTIPLE SCLEROSIS
     Dosage: 22 MCG, 3 IN 1 WEEKS, SUBCUTANEOUS; 11 MCG, 3 IN 1 WEEKS, SUBCUTANEOUS
     Route: 058
     Dates: start: 20040521, end: 20050601
  2. REBIF [Suspect]
     Indication: MULTIPLE SCLEROSIS
     Dosage: 22 MCG, 3 IN 1 WEEKS, SUBCUTANEOUS; 11 MCG, 3 IN 1 WEEKS, SUBCUTANEOUS
     Route: 058
     Dates: start: 20050601, end: 20060101
  3. SYNTHROID [Concomitant]
  4. NEURONTIN [Concomitant]
  5. XANAX [Concomitant]
  6. ATENOLOL [Concomitant]

REACTIONS (4)
  - ASTHENIA [None]
  - BREAST CANCER FEMALE [None]
  - FATIGUE [None]
  - HEPATIC STEATOSIS [None]
